FAERS Safety Report 8292890-X (Version None)
Quarter: 2012Q2

REPORT INFORMATION
  Report Type: 
  Country: None (occurrence: None)
  Receive Date: 20120417
  Receipt Date: 20110808
  Transmission Date: 20120825
  Serious: No
  Sender: FDA-Public Use
  Company Number: US-ASTRAZENECA-2011SE24952

PATIENT
  Age: 58 Year
  Sex: Female
  Weight: 77.6 kg

DRUGS (4)
  1. NEXIUM [Suspect]
     Route: 048
  2. NEXIUM [Suspect]
     Dosage: 1 CAPSULE DAILY
     Route: 048
  3. SYNTHROID [Concomitant]
  4. CRESTOR [Suspect]
     Route: 048

REACTIONS (3)
  - PAIN IN EXTREMITY [None]
  - PARAESTHESIA [None]
  - ARTHRALGIA [None]
